FAERS Safety Report 24959762 (Version 1)
Quarter: 2025Q1

REPORT INFORMATION
  Report Type: Spontaneous
  Country: US (occurrence: None)
  Receive Date: 20250211
  Receipt Date: 20250211
  Transmission Date: 20250409
  Serious: Yes (Death)
  Sender: FDA-CTU
  Company Number: None

PATIENT
  Age: 60 Year
  Sex: Female

DRUGS (3)
  1. COLLAGENASE SANTYL [Suspect]
     Active Substance: COLLAGENASE CLOSTRIDIUM HISTOLYTICUM
     Indication: Product used for unknown indication
     Dosage: OTHER QUANTITY : NICKEL THICK LAYER;?FREQUENCY : 3 TIMES A WEEK;?
     Dates: start: 20241120
  2. LEXAPRO 10MG TABLETS [Concomitant]
  3. VITAMIN C 1000MG LIQUID [Concomitant]

REACTIONS (1)
  - Death [None]
